FAERS Safety Report 11419819 (Version 1)
Quarter: 2015Q3

REPORT INFORMATION
  Report Type: Spontaneous
  Country: US (occurrence: None)
  Receive Date: 20150825
  Receipt Date: 20150825
  Transmission Date: 20151125
  Serious: No
  Sender: FDA-Public Use
  Company Number: None

PATIENT
  Sex: Female

DRUGS (9)
  1. IBRANCE [Suspect]
     Active Substance: PALBOCICLIB
     Indication: METASTASIS
     Dosage: ON DAYS 1-21
     Route: 048
     Dates: start: 20150728
  2. LETROZOLE. [Concomitant]
     Active Substance: LETROZOLE
  3. CHLORHALID [Concomitant]
  4. ALLOPURINOL. [Concomitant]
     Active Substance: ALLOPURINOL
  5. DILTIAZEM [Concomitant]
     Active Substance: DILTIAZEM
  6. IBRANCE [Suspect]
     Active Substance: PALBOCICLIB
     Indication: BREAST CANCER
     Dosage: ON DAYS 1-21
     Route: 048
     Dates: start: 20150728
  7. LISINOPRIL. [Concomitant]
     Active Substance: LISINOPRIL
  8. ASPIRIN. [Concomitant]
     Active Substance: ASPIRIN
  9. NIACIN. [Concomitant]
     Active Substance: NIACIN

REACTIONS (3)
  - Dehydration [None]
  - Renal impairment [None]
  - Fatigue [None]
